FAERS Safety Report 10150973 (Version 2)
Quarter: 2014Q2

REPORT INFORMATION
  Report Type: Spontaneous
  Country: JP (occurrence: JP)
  Receive Date: 20140502
  Receipt Date: 20140624
  Transmission Date: 20141212
  Serious: Yes (Death)
  Sender: FDA-Public Use
  Company Number: JP-PFIZER INC-2014114491

PATIENT
  Sex: 0

DRUGS (1)
  1. PREMARIN [Suspect]
     Indication: MENOPAUSAL SYMPTOMS
     Route: 048

REACTIONS (1)
  - Thrombosis [Fatal]
